FAERS Safety Report 19393293 (Version 3)
Quarter: 2022Q1

REPORT INFORMATION
  Report Type: Spontaneous
  Country: US (occurrence: US)
  Receive Date: 20210609
  Receipt Date: 20220127
  Transmission Date: 20220424
  Serious: Yes (Hospitalization, Other)
  Sender: FDA-Public Use
  Company Number: US-GILEAD-2021-0534902

PATIENT
  Age: 43 Year
  Sex: Male

DRUGS (46)
  1. VIREAD [Suspect]
     Active Substance: TENOFOVIR DISOPROXIL FUMARATE
     Indication: HIV infection
     Dosage: UNK
     Route: 048
     Dates: start: 2009
  2. VIREAD [Suspect]
     Active Substance: TENOFOVIR DISOPROXIL FUMARATE
     Dosage: UNK
     Route: 048
     Dates: start: 201602, end: 201703
  3. TRUVADA [Suspect]
     Active Substance: EMTRICITABINE\TENOFOVIR DISOPROXIL FUMARATE
     Indication: HIV infection
     Dosage: UNK
     Route: 048
     Dates: start: 2009
  4. TRUVADA [Suspect]
     Active Substance: EMTRICITABINE\TENOFOVIR DISOPROXIL FUMARATE
     Dosage: UNK
     Route: 048
     Dates: start: 20071114, end: 200711
  5. ATRIPLA [Suspect]
     Active Substance: EFAVIRENZ\EMTRICITABINE\TENOFOVIR DISOPROXIL FUMARATE
     Indication: HIV infection
     Dosage: UNK
     Route: 048
     Dates: start: 200712, end: 201602
  6. EMTRIVA [Concomitant]
     Active Substance: EMTRICITABINE
  7. EPZICOM [Concomitant]
     Active Substance: ABACAVIR SULFATE\LAMIVUDINE
  8. ISENTRESS [Concomitant]
     Active Substance: RALTEGRAVIR POTASSIUM
  9. KALETRA [Concomitant]
     Active Substance: LOPINAVIR\RITONAVIR
  10. NORVIR [Concomitant]
     Active Substance: RITONAVIR
  11. REYATAZ [Concomitant]
     Active Substance: ATAZANAVIR SULFATE
  12. AMLODIPINE [Concomitant]
     Active Substance: AMLODIPINE BESYLATE
  13. AMOXICILLIN [Concomitant]
     Active Substance: AMOXICILLIN
  14. ATORVASTATIN [Concomitant]
     Active Substance: ATORVASTATIN
  15. ATOVAQUONE [Concomitant]
     Active Substance: ATOVAQUONE
  16. CALCIUM [Concomitant]
     Active Substance: CALCIUM
  17. CARVEDILOL [Concomitant]
     Active Substance: CARVEDILOL
  18. COUMADIN [Concomitant]
     Active Substance: WARFARIN SODIUM
  19. CYCLOBENZAPRINE [Concomitant]
     Active Substance: CYCLOBENZAPRINE
  20. DAPSONE [Concomitant]
     Active Substance: DAPSONE
  21. DICYCLOMINE [Concomitant]
     Active Substance: DICYCLOMINE HYDROCHLORIDE
  22. DIPHENHYDRAMINE [Concomitant]
     Active Substance: DIPHENHYDRAMINE
  23. ELIQUIS [Concomitant]
     Active Substance: APIXABAN
  24. FAMOTIDINE [Concomitant]
     Active Substance: FAMOTIDINE
  25. FLUCONAZOLE [Concomitant]
     Active Substance: FLUCONAZOLE
  26. FUROSEMIDE [Concomitant]
     Active Substance: FUROSEMIDE
  27. HYDROCODONE [Concomitant]
     Active Substance: HYDROCODONE
  28. KETOROLAC [Concomitant]
     Active Substance: KETOROLAC TROMETHAMINE
  29. LAMIVUDINE [Concomitant]
     Active Substance: LAMIVUDINE
  30. LAMOTRIGINE [Concomitant]
     Active Substance: LAMOTRIGINE
  31. LEVAQUIN [Concomitant]
     Active Substance: LEVOFLOXACIN
  32. LEVETIRACETAM [Concomitant]
     Active Substance: LEVETIRACETAM
  33. LORATADINE [Concomitant]
     Active Substance: LORATADINE
  34. LOSARTAN [Concomitant]
     Active Substance: LOSARTAN
  35. MEPRON [Concomitant]
     Active Substance: ATOVAQUONE
  36. METHYLPREDNISOLONE [Concomitant]
     Active Substance: METHYLPREDNISOLONE
  37. METOPROLOL [Concomitant]
     Active Substance: METOPROLOL
  38. METRONIDAZOLE [Concomitant]
     Active Substance: METRONIDAZOLE
  39. NYSTATIN [Concomitant]
     Active Substance: NYSTATIN
  40. ONDANSETRON [Concomitant]
     Active Substance: ONDANSETRON
  41. OXYCODONE [Concomitant]
     Active Substance: OXYCODONE
  42. PREDNISONE [Concomitant]
     Active Substance: PREDNISONE
  43. PROMETHAZINE [Concomitant]
     Active Substance: PROMETHAZINE HYDROCHLORIDE
  44. TRAMADOL [Concomitant]
     Active Substance: TRAMADOL
  45. VITAMIN D2 [Concomitant]
     Active Substance: ERGOCALCIFEROL
  46. WARFARIN [Concomitant]
     Active Substance: WARFARIN

REACTIONS (12)
  - Chronic kidney disease [Recovered/Resolved]
  - End stage renal disease [Not Recovered/Not Resolved]
  - Chronic kidney disease-mineral and bone disorder [Not Recovered/Not Resolved]
  - Acute kidney injury [Not Recovered/Not Resolved]
  - Renal failure [Not Recovered/Not Resolved]
  - Emotional distress [Not Recovered/Not Resolved]
  - Anhedonia [Not Recovered/Not Resolved]
  - Hyperkalaemia [Unknown]
  - Loss of personal independence in daily activities [Not Recovered/Not Resolved]
  - Anaemia [Not Recovered/Not Resolved]
  - Anxiety [Not Recovered/Not Resolved]
  - Pain [Not Recovered/Not Resolved]

NARRATIVE: CASE EVENT DATE: 20151101
